FAERS Safety Report 7388964-8 (Version None)
Quarter: 2011Q1

REPORT INFORMATION
  Report Type: 
  Country: None (occurrence: None)
  Receive Date: 20110329
  Receipt Date: 20110329
  Transmission Date: 20110831
  Serious: Yes (Other)
  Sender: FDA-Public Use
  Company Number: None

PATIENT
  Sex: Female
  Weight: 58.9676 kg

DRUGS (3)
  1. VENLAFAXINE HCL [Suspect]
     Indication: PANIC ATTACK
     Dosage: 37.5MG + 75MG DAILY ORAL
     Route: 048
     Dates: start: 20110310, end: 20110328
  2. VENLAFAXINE HCL [Suspect]
     Indication: ANXIETY
     Dosage: 37.5MG + 75MG DAILY ORAL
     Route: 048
     Dates: start: 20110310, end: 20110328
  3. VENLAFAXINE HCL [Suspect]
     Indication: DEPRESSION
     Dosage: 37.5MG + 75MG DAILY ORAL
     Route: 048
     Dates: start: 20110310, end: 20110328

REACTIONS (2)
  - DRUG INEFFECTIVE [None]
  - TINNITUS [None]
